FAERS Safety Report 15708986 (Version 2)
Quarter: 2024Q4

REPORT INFORMATION
  Report Type: Spontaneous
  Country: US (occurrence: US)
  Receive Date: 20181211
  Receipt Date: 20241223
  Transmission Date: 20250114
  Serious: Yes (Other)
  Sender: PROCTER AND GAMBLE
  Company Number: US-PROCTER_AND_GAMBLE-GS18134134

PATIENT

DRUGS (1)
  1. VICKS NYQUIL SEVERE COLD AND FLU [Suspect]
     Active Substance: ACETAMINOPHEN\DEXTROMETHORPHAN HYDROBROMIDE\DOXYLAMINE SUCCINATE\PHENYLEPHRINE
     Route: 048

REACTIONS (1)
  - Renal failure [Unknown]
